FAERS Safety Report 9314984 (Version 3)
Quarter: 2014Q3

REPORT INFORMATION
  Report Type: Spontaneous
  Country: US (occurrence: US)
  Receive Date: 20130529
  Receipt Date: 20140919
  Transmission Date: 20150326
  Serious: Yes (Hospitalization)
  Sender: FDA-Public Use
  Company Number: US-GLAXOSMITHKLINE-A1024924A

PATIENT
  Age: 39 Year
  Sex: Female

DRUGS (2)
  1. ADVAIR HFA [Suspect]
     Active Substance: FLUTICASONE PROPIONATE\SALMETEROL XINAFOATE
     Indication: ASTHMA
     Route: 065
     Dates: start: 20111001
  2. VENTOLIN [Suspect]
     Active Substance: ALBUTEROL SULFATE
     Indication: ASTHMA
     Dosage: 90MCG UNKNOWN
     Route: 065
     Dates: start: 201201

REACTIONS (7)
  - Lung disorder [Unknown]
  - Asthma [Unknown]
  - Medical induction of coma [Unknown]
  - Drug dose omission [Unknown]
  - Emergency care examination [Unknown]
  - Dyspnoea [Unknown]
  - Coma [Unknown]
